FAERS Safety Report 8272990-0 (Version None)
Quarter: 2012Q2

REPORT INFORMATION
  Report Type: 
  Country: None (occurrence: None)
  Receive Date: 20120411
  Receipt Date: 20120330
  Transmission Date: 20120825
  Serious: Yes (Hospitalization)
  Sender: FDA-Public Use
  Company Number: US-JNJFOC-20120401019

PATIENT
  Sex: Female

DRUGS (2)
  1. REMICADE [Suspect]
     Indication: CROHN'S DISEASE
     Dosage: 4/100 MG VIALS
     Route: 042
     Dates: start: 20050101, end: 20110101
  2. REMICADE [Suspect]
     Route: 042
     Dates: start: 20110101

REACTIONS (14)
  - GASTROINTESTINAL STENOSIS [None]
  - VEIN DISORDER [None]
  - HYPERHIDROSIS [None]
  - CHOLANGITIS [None]
  - LIVER INJURY [None]
  - CROHN'S DISEASE [None]
  - ABSCESS [None]
  - ARTHRALGIA [None]
  - BLOOD ALKALINE PHOSPHATASE INCREASED [None]
  - DIPLOPIA [None]
  - HYPOAESTHESIA [None]
  - DIZZINESS [None]
  - ABNORMAL LOSS OF WEIGHT [None]
  - ANAEMIA [None]
